FAERS Safety Report 4866905-2 (Version None)
Quarter: 2005Q4

REPORT INFORMATION
  Report Type: 
  Country: None (occurrence: None)
  Receive Date: 20051222
  Receipt Date: 20051206
  Transmission Date: 20060501
  Serious: Yes (Hospitalization, Other)
  Sender: FDA-Public Use
  Company Number: 200510802

PATIENT
  Age: 49 Year
  Sex: Female
  Weight: 47.6277 kg

DRUGS (6)
  1. BOTOX COSMETIC [Suspect]
     Indication: SKIN WRINKLING
     Dates: start: 20030301
  2. BOTOX COSMETIC [Suspect]
     Indication: SKIN WRINKLING
     Dates: start: 20030601
  3. BOTOX COSMETIC [Suspect]
     Indication: SKIN WRINKLING
     Dates: start: 20031001
  4. BOTOX COSMETIC [Suspect]
     Indication: SKIN WRINKLING
     Dates: start: 20031201
  5. PREMARIN [Concomitant]
  6. ATIVAN [Concomitant]

REACTIONS (27)
  - ASTERIXIS [None]
  - ASTHENIA [None]
  - BLOOD PRESSURE ORTHOSTATIC DECREASED [None]
  - CHEST PAIN [None]
  - DIZZINESS [None]
  - DRY MOUTH [None]
  - HEART RATE DECREASED [None]
  - HEART RATE IRREGULAR [None]
  - HYPOAESTHESIA [None]
  - INFLAMMATION [None]
  - MADAROSIS [None]
  - MUSCLE SPASMS [None]
  - NAUSEA [None]
  - ONYCHOMADESIS [None]
  - PAIN [None]
  - PALPITATIONS [None]
  - PARAESTHESIA ORAL [None]
  - PHARYNGEAL MASS [None]
  - POLLAKIURIA [None]
  - RASH [None]
  - SINUSITIS [None]
  - SKIN DISORDER [None]
  - STOMATITIS [None]
  - SUBCUTANEOUS NODULE [None]
  - TENSION HEADACHE [None]
  - TOOTH DISORDER [None]
  - URINE ANALYSIS ABNORMAL [None]
